FAERS Safety Report 6489528-0 (Version None)
Quarter: 2009Q4

REPORT INFORMATION
  Report Type: 
  Country: None (occurrence: None)
  Receive Date: 20091210
  Receipt Date: 20091005
  Transmission Date: 20100525
  Serious: No
  Sender: FDA-Public Use
  Company Number: US-AMGEN-KDL367433

PATIENT
  Sex: Female
  Weight: 54.5 kg

DRUGS (5)
  1. ENBREL [Suspect]
     Indication: RHEUMATOID ARTHRITIS
     Route: 058
     Dates: start: 20090801
  2. METHOTREXATE [Concomitant]
  3. WELLBUTRIN [Concomitant]
  4. LUNESTA [Concomitant]
  5. VALIUM [Concomitant]

REACTIONS (8)
  - CONTUSION [None]
  - HEADACHE [None]
  - INJECTION SITE PRURITUS [None]
  - INJECTION SITE RASH [None]
  - INJECTION SITE REACTION [None]
  - INJECTION SITE SWELLING [None]
  - INJECTION SITE URTICARIA [None]
  - OROPHARYNGEAL PAIN [None]
